FAERS Safety Report 9729765 (Version 1)
Quarter: 2013Q4

REPORT INFORMATION
  Report Type: Spontaneous
  Country: US (occurrence: US)
  Receive Date: 20131204
  Receipt Date: 20131204
  Transmission Date: 20140711
  Serious: No
  Sender: FDA-Public Use
  Company Number: US-GILEAD-2009-0022440

PATIENT
  Sex: Male
  Weight: 63.5 kg

DRUGS (8)
  1. LETAIRIS [Suspect]
     Indication: PULMONARY ARTERIAL HYPERTENSION
     Route: 048
     Dates: start: 20090410, end: 20090520
  2. ENALAPRIL MALEATE [Concomitant]
  3. ATENOLOL [Concomitant]
  4. FUROSEMIDE [Concomitant]
  5. ISOSORBIDE MN [Concomitant]
  6. LUPRON DEPOT-4 [Concomitant]
  7. ENSURE [Concomitant]
  8. DAILY IRON [Concomitant]

REACTIONS (1)
  - Dyspnoea [Unknown]
